FAERS Safety Report 9807512 (Version 1)
Quarter: 2014Q1

REPORT INFORMATION
  Report Type: Spontaneous
  Country: US (occurrence: US)
  Receive Date: 20140110
  Receipt Date: 20140110
  Transmission Date: 20141002
  Serious: No
  Sender: FDA-Public Use
  Company Number: US-SA-2013SA106821

PATIENT
  Sex: Male
  Weight: 83 kg

DRUGS (6)
  1. PLAVIX [Suspect]
     Route: 048
  2. CLOPIDOGREL WINTHROP [Suspect]
     Route: 065
  3. LOSARTAN POTASSIUM [Concomitant]
  4. ATORVASTATIN [Concomitant]
  5. ALLOPURINOL [Concomitant]
  6. METOPROLOL TARTRATE [Concomitant]

REACTIONS (2)
  - Bleeding time prolonged [Recovered/Resolved]
  - Pruritus [Unknown]
